FAERS Safety Report 4680438-8 (Version None)
Quarter: 2005Q2

REPORT INFORMATION
  Report Type: 
  Country: None (occurrence: None)
  Receive Date: 20050601
  Receipt Date: 20050519
  Transmission Date: 20051028
  Serious: Yes (Death, Other)
  Sender: FDA-Public Use
  Company Number: FR_050506451

PATIENT
  Age: 74 Year
  Sex: Male

DRUGS (2)
  1. GEMZAR [Suspect]
  2. CISPLATIN [Concomitant]

REACTIONS (4)
  - ARTERIAL THROMBOSIS [None]
  - CYANOSIS [None]
  - PERIPHERAL ISCHAEMIA [None]
  - RENAL FAILURE [None]
